FAERS Safety Report 8334628-3 (Version None)
Quarter: 2012Q2

REPORT INFORMATION
  Report Type: 
  Country: None (occurrence: None)
  Receive Date: 20120503
  Receipt Date: 20120425
  Transmission Date: 20120825
  Serious: Yes (Hospitalization, Disabling, Other)
  Sender: FDA-Public Use
  Company Number: US-MERCK-1203USA03351

PATIENT
  Age: 71 Year
  Sex: Female

DRUGS (7)
  1. FOSAMAX [Suspect]
     Indication: BONE DENSITY DECREASED
     Route: 048
     Dates: start: 20030301, end: 20110301
  2. PREMARIN [Concomitant]
     Indication: POSTMENOPAUSE
     Route: 065
     Dates: start: 19740101, end: 20030501
  3. NEXIUM [Concomitant]
     Indication: GASTROOESOPHAGEAL REFLUX DISEASE
     Route: 065
  4. FOSAMAX [Suspect]
     Indication: OSTEOPENIA
     Route: 048
     Dates: start: 20030301, end: 20110301
  5. FOSAMAX [Suspect]
     Route: 048
  6. FOSAMAX [Suspect]
     Route: 048
  7. PROTONIX [Concomitant]
     Indication: GASTROOESOPHAGEAL REFLUX DISEASE
     Route: 065
     Dates: start: 20020101

REACTIONS (8)
  - STRESS FRACTURE [None]
  - FRACTURE [None]
  - GLAUCOMA [None]
  - OSTEOPOROSIS [None]
  - LOW TURNOVER OSTEOPATHY [None]
  - FEMUR FRACTURE [None]
  - BARRETT'S OESOPHAGUS [None]
  - INNER EAR DISORDER [None]
